FAERS Safety Report 10265627 (Version 1)
Quarter: 2014Q2

REPORT INFORMATION
  Report Type: Spontaneous
  Country: BE (occurrence: BE)
  Receive Date: 20140627
  Receipt Date: 20140627
  Transmission Date: 20141212
  Serious: Yes (Death, Other)
  Sender: FDA-Public Use
  Company Number: PHHY2014BE078853

PATIENT
  Age: 71 Year
  Sex: Female

DRUGS (24)
  1. CICLOSPORIN [Suspect]
  2. LANOXIN [Concomitant]
     Indication: ATRIAL FIBRILLATION
  3. MARCOUMAR [Concomitant]
     Indication: ATRIAL FIBRILLATION
  4. ARANESP [Concomitant]
  5. OMEPRAZOLE [Concomitant]
  6. LEVOTHYROXINE [Concomitant]
  7. CORUNO [Concomitant]
  8. ZOCOR [Concomitant]
  9. ALLOPURINOL [Concomitant]
  10. BURINEX [Concomitant]
  11. ZESTRIL [Concomitant]
  12. CALCIUM CARBONATE [Concomitant]
  13. MEDROL [Concomitant]
  14. CELLCEPT [Concomitant]
  15. VITAMIN K//VITAMIN K NOS [Concomitant]
  16. HEPARIN [Concomitant]
  17. CINACALCET [Concomitant]
  18. PAMIDRONATE [Concomitant]
  19. OPIOIDS [Concomitant]
  20. AQUACEL [Concomitant]
  21. TAZOCIN [Concomitant]
  22. SODIUM THIOSULFATE [Concomitant]
     Dosage: 15 G, BID IN 250 ML GLUCOSE 5% SOLUTION
  23. SODIUM THIOSULFATE [Concomitant]
     Dosage: 7.5 MG, BID
  24. SODIUM BICARBONATE [Concomitant]

REACTIONS (3)
  - Death [Fatal]
  - Toxicity to various agents [Unknown]
  - Transplant dysfunction [Unknown]
